FAERS Safety Report 16274091 (Version 1)
Quarter: 2019Q2

REPORT INFORMATION
  Report Type: Spontaneous
  Country: ES (occurrence: ES)
  Receive Date: 20190506
  Receipt Date: 20190506
  Transmission Date: 20190711
  Serious: Yes (Death, Other)
  Sender: FDA-Public Use
  Company Number: ES-SUN PHARMACEUTICAL INDUSTRIES LTD-2019RR-206202

PATIENT
  Age: 88 Year
  Sex: Male

DRUGS (3)
  1. CETUXIMAB. [Suspect]
     Active Substance: CETUXIMAB
     Indication: ADENOCARCINOMA
     Dosage: UNK
     Route: 065
  2. IRINOTECAN [Suspect]
     Active Substance: IRINOTECAN
     Indication: ADENOCARCINOMA
     Dosage: 125 MILLIGRAM/SQ. METER EVERY 2 WEEKS
     Route: 065
  3. DEXAMETHASONE. [Suspect]
     Active Substance: DEXAMETHASONE
     Indication: ADENOCARCINOMA
     Dosage: UNK
     Route: 065

REACTIONS (5)
  - Haemorrhage intracranial [Fatal]
  - Diarrhoea [Unknown]
  - Neoplasm progression [Fatal]
  - K-ras gene mutation [Unknown]
  - Drug ineffective [Unknown]
